FAERS Safety Report 8496417-9 (Version None)
Quarter: 2012Q2

REPORT INFORMATION
  Report Type: 
  Country: None (occurrence: None)
  Receive Date: 20120405
  Receipt Date: 20091112
  Transmission Date: 20120825
  Serious: Yes (Other)
  Sender: FDA-Public Use
  Company Number: PHEH2009US14848

PATIENT
  Age: 56 Year
  Sex: Female
  Weight: 57.6 kg

DRUGS (2)
  1. RECLAST [Suspect]
     Indication: OSTEOPENIA
     Dosage: UNK, INTRAVENOUS
     Route: 042
     Dates: start: 20090824
  2. LEVOTHYROXINE SODIUM [Concomitant]

REACTIONS (8)
  - MYALGIA [None]
  - HYPOAESTHESIA [None]
  - PYREXIA [None]
  - SLEEP DISORDER [None]
  - MALAISE [None]
  - MUSCULOSKELETAL STIFFNESS [None]
  - PAIN [None]
  - MUSCLE SPASMS [None]
